FAERS Safety Report 9545820 (Version 1)
Quarter: 2013Q3

REPORT INFORMATION
  Report Type: Spontaneous
  Country: US (occurrence: US)
  Receive Date: 20130923
  Receipt Date: 20130923
  Transmission Date: 20140515
  Serious: No
  Sender: FDA-Public Use
  Company Number: US-GLAXOSMITHKLINE-A1013734A

PATIENT
  Age: 59 Year
  Sex: Male

DRUGS (4)
  1. ABREVA [Suspect]
     Indication: ORAL HERPES
     Dates: start: 20130222, end: 20130226
  2. ALCOHOL [Concomitant]
  3. VINEGAR [Concomitant]
  4. PEROXIDE [Concomitant]

REACTIONS (3)
  - Drug ineffective [Unknown]
  - Oral herpes [Recovered/Resolved]
  - Drug administration error [Unknown]
